FAERS Safety Report 12937774 (Version 1)
Quarter: 2016Q4

REPORT INFORMATION
  Report Type: Spontaneous
  Country: US (occurrence: US)
  Receive Date: 20161114
  Receipt Date: 20161114
  Transmission Date: 20170207
  Serious: No
  Sender: FDA-Public Use
  Company Number: US-MYLANLABS-2016M1032632

PATIENT
  Age: 33 Year
  Sex: Female

DRUGS (2)
  1. XULANE [Suspect]
     Active Substance: ETHINYL ESTRADIOL\NORELGESTROMIN
     Dosage: 150/35 ?G, QD, QWK FOR 3 WKS THEN OFF FOR 1 WK
     Route: 062
  2. TEGADERM [Suspect]
     Active Substance: 2-HYDROXYETHYL METHACRYLATE
     Dosage: UNK
     Route: 062

REACTIONS (3)
  - Wrong technique in product usage process [Not Recovered/Not Resolved]
  - Metrorrhagia [Not Recovered/Not Resolved]
  - Application site pain [Not Recovered/Not Resolved]

NARRATIVE: CASE EVENT DATE: 20160802
